FAERS Safety Report 18604266 (Version 1)
Quarter: 2020Q4

REPORT INFORMATION
  Report Type: Spontaneous
  Country: US (occurrence: US)
  Receive Date: 20201210
  Receipt Date: 20201210
  Transmission Date: 20210114
  Serious: No
  Sender: FDA-Public Use
  Company Number: None

PATIENT
  Age: 78 Year
  Sex: Female

DRUGS (1)
  1. ONDANSETRON HCL 8MG GLENMARK PHARMACEUTICALS [Suspect]
     Active Substance: ONDANSETRON HYDROCHLORIDE
     Indication: UTERINE CANCER
     Route: 048
     Dates: start: 202011

REACTIONS (2)
  - Contusion [None]
  - Haemorrhage [None]

NARRATIVE: CASE EVENT DATE: 202011
